FAERS Safety Report 16472888 (Version 1)
Quarter: 2019Q2

REPORT INFORMATION
  Report Type: Spontaneous
  Country: US (occurrence: US)
  Receive Date: 20190625
  Receipt Date: 20190625
  Transmission Date: 20190711
  Serious: Yes (Other)
  Sender: FDA-Public Use
  Company Number: US-GW PHARMA-201906USGW2032

PATIENT

DRUGS (2)
  1. EPIDIOLEX [Suspect]
     Active Substance: CANNABIDIOL
     Indication: EPILEPSY
     Dosage: 80 MILLIGRAM, BID
     Route: 048
     Dates: end: 201906
  2. EPIDIOLEX [Suspect]
     Active Substance: CANNABIDIOL
     Dosage: 90 MILLIGRAM, BID
     Route: 048
     Dates: start: 201906

REACTIONS (1)
  - Seizure [Unknown]

NARRATIVE: CASE EVENT DATE: 20190614
